FAERS Safety Report 7240713-X (Version None)
Quarter: 2011Q1

REPORT INFORMATION
  Report Type: 
  Country: None (occurrence: None)
  Receive Date: 20110124
  Receipt Date: 20110114
  Transmission Date: 20110831
  Serious: Yes (Other)
  Sender: FDA-Public Use
  Company Number: CA-US-EMD SERONO, INC.-7000946

PATIENT
  Sex: Female

DRUGS (9)
  1. CIPROLEX [Concomitant]
  2. SYNTHROID [Concomitant]
  3. REBIF [Suspect]
     Indication: RELAPSING-REMITTING MULTIPLE SCLEROSIS
     Dates: start: 20040408, end: 20050110
  4. LYRICA [Concomitant]
  5. METHYLPHENID [Concomitant]
  6. VITAMIN D [Concomitant]
  7. RATIO FLUOXETINE [Concomitant]
  8. REBIF [Suspect]
     Indication: MULTIPLE SCLEROSIS
     Dates: start: 20090105
  9. GABAPENTIN [Concomitant]

REACTIONS (11)
  - TREMOR [None]
  - FALL [None]
  - DIZZINESS [None]
  - PAIN [None]
  - FATIGUE [None]
  - CONTUSION [None]
  - MUSCLE STRAIN [None]
  - INJECTION SITE PAIN [None]
  - LOSS OF CONSCIOUSNESS [None]
  - INJECTION SITE HAEMORRHAGE [None]
  - DEPRESSION [None]
